FAERS Safety Report 9524258 (Version 1)
Quarter: 2013Q3

REPORT INFORMATION
  Report Type: Spontaneous
  Country: US (occurrence: None)
  Receive Date: 20130912
  Receipt Date: 20130912
  Transmission Date: 20140515
  Serious: No
  Sender: FDA-Public Use
  Company Number: None

PATIENT
  Age: 78 Year
  Sex: Female
  Weight: 71.22 kg

DRUGS (13)
  1. LISINOPRIL HCTZ [Suspect]
     Indication: HYPERTENSION
     Route: 048
     Dates: end: 20130824
  2. CARVEDILOL [Concomitant]
  3. GLUCOPHAGE [Concomitant]
  4. TRADJENTA [Concomitant]
  5. NATEGLINIDE [Concomitant]
  6. GLIMEPRIDE [Concomitant]
  7. ACARBOSE [Concomitant]
  8. PRAVASTATIN [Concomitant]
  9. ASPIRIN [Concomitant]
  10. ALEVE [Concomitant]
  11. VIT D3 [Concomitant]
  12. CENTRUM SILVER [Concomitant]
  13. ALLEGRA [Concomitant]

REACTIONS (2)
  - Leukocytosis [None]
  - Leukaemia [None]
